FAERS Safety Report 6086868-4 (Version None)
Quarter: 2009Q1

REPORT INFORMATION
  Report Type: 
  Country: None (occurrence: None)
  Receive Date: 20090223
  Receipt Date: 20090211
  Transmission Date: 20090719
  Serious: Yes (Life-Threatening)
  Sender: FDA-Public Use
  Company Number: GB-PFIZER INC-2009169582

PATIENT

DRUGS (8)
  1. SALAZOPYRIN [Suspect]
     Indication: RHEUMATOID ARTHRITIS
     Dosage: 500 MG, 1X/DAY
     Route: 048
     Dates: start: 20090120, end: 20090124
  2. CITALOPRAM HYDROBROMIDE [Concomitant]
     Indication: DEPRESSION
     Dosage: 20 MG, FREQUENCY: DAILY
     Route: 048
     Dates: start: 20090102
  3. CLONIDINE [Concomitant]
     Indication: HYPERTENSION
     Dosage: 25 UG, 2X/DAY
     Route: 048
     Dates: start: 20081107
  4. CLONIDINE [Concomitant]
     Indication: MENOPAUSAL SYMPTOMS
  5. OLMESARTAN [Concomitant]
     Indication: HYPERTENSION
     Dosage: 40 MG, FREQUENCY: DAILY
     Route: 048
     Dates: start: 20060817
  6. OMEPRAZOLE [Concomitant]
     Indication: GASTROOESOPHAGEAL REFLUX DISEASE
     Dosage: 10 MG, FREQUENCY: DAILY
     Route: 048
     Dates: start: 20060913
  7. ZOLPIDEM [Concomitant]
     Indication: DEPRESSION
     Dosage: 5 MG, FREQUENCY: DAILY
     Route: 048
     Dates: start: 20080325
  8. ZOLPIDEM [Concomitant]
     Indication: POOR QUALITY SLEEP

REACTIONS (2)
  - DEPRESSION [None]
  - SUICIDAL IDEATION [None]
